FAERS Safety Report 8777254 (Version 2)
Quarter: 2014Q2

REPORT INFORMATION
  Report Type: Spontaneous
  Country: US (occurrence: US)
  Receive Date: 20120910
  Receipt Date: 20140423
  Transmission Date: 20141212
  Serious: No
  Sender: FDA-Public Use
  Company Number: US-ASTRAZENECA-2012SE41538

PATIENT
  Age: 73 Year
  Sex: Female
  Weight: 64.4 kg

DRUGS (30)
  1. SYMBICORT PMDI [Suspect]
     Indication: ASTHMA
     Dosage: 160/4.5 MCG, 2 PUFFS, BID
     Route: 055
     Dates: start: 2011
  2. NEXIUM [Suspect]
     Indication: DYSPEPSIA
     Dosage: DAILY
     Route: 048
     Dates: start: 2012, end: 2013
  3. NEXIUM [Suspect]
     Indication: DYSPEPSIA
     Dosage: DAILY
     Route: 048
  4. SEROQUEL [Suspect]
     Indication: SCHIZOPHRENIA
     Route: 048
  5. SEROQUEL [Suspect]
     Indication: INSOMNIA
     Route: 048
  6. SEROQUEL [Suspect]
     Indication: ILL-DEFINED DISORDER
     Route: 048
  7. SEROQUEL [Suspect]
     Indication: SLEEP DISORDER
     Route: 048
  8. SEROQUEL [Suspect]
     Indication: SCHIZOPHRENIA
     Dosage: DAILY
     Route: 048
  9. SEROQUEL [Suspect]
     Indication: INSOMNIA
     Dosage: DAILY
     Route: 048
  10. SEROQUEL [Suspect]
     Indication: ILL-DEFINED DISORDER
     Dosage: DAILY
     Route: 048
  11. SEROQUEL [Suspect]
     Indication: SLEEP DISORDER
     Dosage: DAILY
     Route: 048
  12. SEROQUEL [Suspect]
     Indication: SCHIZOPHRENIA
     Route: 048
     Dates: start: 2006
  13. SEROQUEL [Suspect]
     Indication: INSOMNIA
     Route: 048
     Dates: start: 2006
  14. SEROQUEL [Suspect]
     Indication: ILL-DEFINED DISORDER
     Route: 048
     Dates: start: 2006
  15. SEROQUEL [Suspect]
     Indication: SLEEP DISORDER
     Route: 048
     Dates: start: 2006
  16. SEROQUEL [Suspect]
     Indication: SCHIZOPHRENIA
     Route: 048
  17. SEROQUEL [Suspect]
     Indication: INSOMNIA
     Route: 048
  18. SEROQUEL [Suspect]
     Indication: ILL-DEFINED DISORDER
     Route: 048
  19. SEROQUEL [Suspect]
     Indication: SLEEP DISORDER
     Route: 048
  20. SEROQUEL [Suspect]
     Indication: SCHIZOPHRENIA
     Route: 048
     Dates: end: 201401
  21. SEROQUEL [Suspect]
     Indication: INSOMNIA
     Route: 048
     Dates: end: 201401
  22. SEROQUEL [Suspect]
     Indication: ILL-DEFINED DISORDER
     Route: 048
     Dates: end: 201401
  23. SEROQUEL [Suspect]
     Indication: SLEEP DISORDER
     Route: 048
     Dates: end: 201401
  24. XANAX [Concomitant]
     Indication: ANXIETY
  25. VITAMIN D [Concomitant]
  26. B COMPLEX [Concomitant]
  27. ALBUTEROL [Concomitant]
  28. CALCIUM [Concomitant]
  29. IPRATROPIUM BROMIDE [Concomitant]
  30. XOPENEX HFA [Concomitant]

REACTIONS (14)
  - Dyspnoea [Unknown]
  - Sleep apnoea syndrome [Unknown]
  - Confusional state [Unknown]
  - Respiratory disorder [Unknown]
  - Fatigue [Unknown]
  - Malaise [Unknown]
  - Vocal cord disorder [Unknown]
  - Malaise [Unknown]
  - Thyroid function test abnormal [Unknown]
  - Insomnia [Unknown]
  - Intentional product misuse [Unknown]
  - Drug dose omission [Unknown]
  - Off label use [Unknown]
  - Off label use [Unknown]
